FAERS Safety Report 10866140 (Version 1)
Quarter: 2015Q1

REPORT INFORMATION
  Report Type: Spontaneous
  Country: US (occurrence: None)
  Receive Date: 20150219
  Receipt Date: 20150219
  Transmission Date: 20150721
  Serious: Yes (Other)
  Sender: FDA-Public Use
  Company Number: None

PATIENT
  Age: 65 Year
  Sex: Female
  Weight: 83.92 kg

DRUGS (3)
  1. LASIX [Concomitant]
     Active Substance: FUROSEMIDE
  2. DIOVAN [Suspect]
     Active Substance: VALSARTAN
     Dates: start: 20140821, end: 20140826
  3. HTCZ [Concomitant]

REACTIONS (3)
  - Fluid retention [None]
  - Bronchitis chronic [None]
  - Product substitution issue [None]

NARRATIVE: CASE EVENT DATE: 20140821
